FAERS Safety Report 7354949-0 (Version None)
Quarter: 2011Q1

REPORT INFORMATION
  Report Type: 
  Country: None (occurrence: None)
  Receive Date: 20110311
  Receipt Date: 20110311
  Transmission Date: 20110831
  Serious: Yes (Life-Threatening, Hospitalization)
  Sender: FDA-Public Use
  Company Number: None

PATIENT
  Sex: Female
  Weight: 86.1834 kg

DRUGS (1)
  1. PROPOXYPH 100-650 [Suspect]
     Dosage: AS NEEDED FOR PAIN CVS HV TX PHARM 20

REACTIONS (1)
  - DYSPNOEA [None]
